FAERS Safety Report 8264661-1 (Version None)
Quarter: 2012Q2

REPORT INFORMATION
  Report Type: 
  Country: None (occurrence: None)
  Receive Date: 20120403
  Receipt Date: 20120329
  Transmission Date: 20120825
  Serious: Yes (Hospitalization, Other)
  Sender: FDA-Public Use
  Company Number: 2010000353

PATIENT
  Age: 72 Year
  Sex: Male

DRUGS (1)
  1. TARCEVA [Suspect]
     Indication: LUNG NEOPLASM MALIGNANT
     Dosage: 150 MG, UID/QID, ORAL
     Route: 048
     Dates: start: 20100118

REACTIONS (10)
  - HIP FRACTURE [None]
  - FALL [None]
  - VOMITING [None]
  - FATIGUE [None]
  - NAUSEA [None]
  - COUGH [None]
  - LUNG NEOPLASM MALIGNANT [None]
  - NEOPLASM PROGRESSION [None]
  - RASH [None]
  - DIARRHOEA [None]
